FAERS Safety Report 5376714-6 (Version None)
Quarter: 2007Q2

REPORT INFORMATION
  Report Type: 
  Country: None (occurrence: None)
  Receive Date: 20070629
  Receipt Date: 20070629
  Transmission Date: 20071010
  Serious: Yes (Life-Threatening, Hospitalization, Disabling)
  Sender: FDA-Public Use
  Company Number: None

PATIENT
  Sex: Male
  Weight: 83 kg

DRUGS (2)
  1. THYMOGLOBULIN [Suspect]
     Indication: DRUG THERAPY
     Dosage: 675 MG ( 7 DOSES TOTAL)
     Dates: start: 20070124, end: 20070126
  2. THYMOGLOBULIN [Suspect]
     Indication: DRUG THERAPY
     Dosage: 675 MG ( 7 DOSES TOTAL)
     Dates: start: 20070129, end: 20070201

REACTIONS (5)
  - BLOOD CREATININE INCREASED [None]
  - HAEMODIALYSIS [None]
  - OEDEMA PERIPHERAL [None]
  - TRANSPLANT FAILURE [None]
  - WHITE BLOOD CELL COUNT DECREASED [None]
